FAERS Safety Report 16693419 (Version 1)
Quarter: 2019Q3

REPORT INFORMATION
  Report Type: Spontaneous
  Country: US (occurrence: US)
  Receive Date: 20190812
  Receipt Date: 20190812
  Transmission Date: 20191004
  Serious: Yes (Hospitalization)
  Sender: FDA-Public Use
  Company Number: US-EISAI MEDICAL RESEARCH-EC-2019-060526

PATIENT
  Sex: Female

DRUGS (4)
  1. LENVIMA [Suspect]
     Active Substance: LENVATINIB
     Dosage: DOSE AND FREQUENCY UNKNOWN
     Route: 048
     Dates: start: 2019, end: 2019
  2. LENVIMA [Suspect]
     Active Substance: LENVATINIB
     Indication: RENAL CANCER
     Route: 048
     Dates: start: 2018, end: 2018
  3. LENVIMA [Suspect]
     Active Substance: LENVATINIB
     Route: 048
     Dates: start: 2018, end: 201812
  4. LENVIMA [Suspect]
     Active Substance: LENVATINIB
     Dosage: DOSE DOWN-TITRATED (DOSING UNSPECIFIED)
     Route: 048
     Dates: start: 2018, end: 2018

REACTIONS (2)
  - Gastrointestinal perforation [Unknown]
  - Fatigue [Unknown]

NARRATIVE: CASE EVENT DATE: 2018
